FAERS Safety Report 7498809-3 (Version None)
Quarter: 2011Q2

REPORT INFORMATION
  Report Type: 
  Country: None (occurrence: None)
  Receive Date: 20110524
  Receipt Date: 20110510
  Transmission Date: 20111010
  Serious: Yes (Hospitalization, Other)
  Sender: FDA-Public Use
  Company Number: GB-RANBAXY-2008RR-17108

PATIENT
  Age: 80 Year
  Sex: Female

DRUGS (10)
  1. PRAVASTATIN [Suspect]
     Indication: HYPERCHOLESTEROLAEMIA
     Dosage: 20 MG, QD
     Route: 048
  2. AMITRIPTYLINE HCL [Concomitant]
     Indication: COLITIS
  3. ASPIRIN [Suspect]
     Dosage: 75 MG, QD
  4. LEVOTHYROXINE SODIUM [Suspect]
     Indication: HYPOTHYROIDISM
     Dosage: 75 UG, QD
  5. AMITRIPTYLINE HCL [Concomitant]
     Indication: DEPRESSION
     Dosage: 50 MG, QD
     Route: 042
  6. ARTHROTEC [Suspect]
     Indication: ARTHRITIS
     Dosage: 50 MG, BID
  7. ASPIRIN [Suspect]
     Indication: HYPERTENSION
     Dosage: 50 MG, QD
     Route: 042
  8. ATENOLOL [Suspect]
     Indication: HYPERTENSION
     Dosage: 50 MG, QD
     Route: 048
  9. ARTHROTEC [Suspect]
     Indication: DEPRESSION
     Dosage: 75 MG, QD
  10. ATENOLOL [Suspect]
     Indication: HYPERCHOLESTEROLAEMIA
     Dosage: 20 MG, QD
     Route: 048

REACTIONS (14)
  - ANAEMIA [None]
  - DRUG INTERACTION [None]
  - DEHYDRATION [None]
  - DECREASED APPETITE [None]
  - DIARRHOEA [None]
  - DRUG LEVEL DECREASED [None]
  - PULMONARY EMBOLISM [None]
  - ABDOMINAL DISCOMFORT [None]
  - TENDERNESS [None]
  - COLITIS [None]
  - WEIGHT DECREASED [None]
  - LARGE INTESTINAL ULCER [None]
  - FIBROSIS [None]
  - MUCOSAL INFLAMMATION [None]
